FAERS Safety Report 14601784 (Version 3)
Quarter: 2018Q2

REPORT INFORMATION
  Report Type: Spontaneous
  Country: US (occurrence: US)
  Receive Date: 20180306
  Receipt Date: 20180413
  Transmission Date: 20180711
  Serious: No
  Sender: FDA-Public Use
  Company Number: US-ASTRAZENECA-2018SE27043

PATIENT
  Sex: Male

DRUGS (1)
  1. BYDUREON [Suspect]
     Active Substance: EXENATIDE
     Indication: TYPE 2 DIABETES MELLITUS
     Route: 065

REACTIONS (6)
  - Drug dose omission [Unknown]
  - Frustration tolerance decreased [Unknown]
  - Device malfunction [Unknown]
  - Needle issue [Unknown]
  - Injection site pain [Unknown]
  - Wrong technique in device usage process [Unknown]
